FAERS Safety Report 25196060 (Version 1)
Quarter: 2025Q2

REPORT INFORMATION
  Report Type: Spontaneous
  Country: DE (occurrence: DE)
  Receive Date: 20250415
  Receipt Date: 20250415
  Transmission Date: 20250717
  Serious: Yes (Life-Threatening, Hospitalization, Other)
  Sender: RISING PHARMACEUTICALS
  Company Number: DE-RISINGPHARMA-DE-2025RISLIT00178

PATIENT
  Age: 12 Week
  Sex: Male

DRUGS (1)
  1. LIDOCAINE HYDROCHLORIDE [Suspect]
     Active Substance: LIDOCAINE HYDROCHLORIDE
     Indication: Local anaesthesia
     Route: 042

REACTIONS (7)
  - Local anaesthetic systemic toxicity [Recovered/Resolved]
  - Status epilepticus [Recovered/Resolved]
  - Generalised tonic-clonic seizure [Recovered/Resolved]
  - Toxicity to various agents [Recovered/Resolved]
  - Altered state of consciousness [Recovered/Resolved]
  - Sinus tachycardia [Recovered/Resolved]
  - Tachycardia [Recovered/Resolved]
